FAERS Safety Report 8984338 (Version 2)
Quarter: 2013Q2

REPORT INFORMATION
  Report Type: Report from Study
  Country: CA (occurrence: CA)
  Receive Date: 20121226
  Receipt Date: 20130624
  Transmission Date: 20140414
  Serious: Yes (Hospitalization)
  Sender: FDA-Public Use
  Company Number: CA-JNJFOC-20121207185

PATIENT
  Age: 62 Year
  Sex: Male
  Weight: 95.4 kg

DRUGS (10)
  1. REMICADE [Suspect]
     Indication: RHEUMATOID ARTHRITIS
     Route: 042
     Dates: end: 201207
  2. REMICADE [Suspect]
     Indication: RHEUMATOID ARTHRITIS
     Route: 042
     Dates: start: 20121206
  3. REMICADE [Suspect]
     Indication: RHEUMATOID ARTHRITIS
     Route: 042
     Dates: start: 20110711
  4. REMICADE [Suspect]
     Indication: RHEUMATOID ARTHRITIS
     Route: 042
     Dates: start: 201301
  5. ACETYLSALICYLIC ACID [Concomitant]
     Route: 065
  6. BISOPROLOL [Concomitant]
     Dosage: HALF TABLET
     Route: 065
  7. MAVIK [Concomitant]
     Dosage: HALF DOSE
     Route: 065
  8. PANTOLOC [Concomitant]
     Dosage: 40 (UNITS UNSPECIFIED)
     Route: 065
  9. ATORVASTATIN [Concomitant]
     Route: 065
  10. PLAVIX [Concomitant]
     Dosage: 75 (UNITS UNSPECIFIED)
     Route: 065

REACTIONS (1)
  - Myocardial infarction [Unknown]
